FAERS Safety Report 4773239-3 (Version None)
Quarter: 2005Q3

REPORT INFORMATION
  Report Type: 
  Country: None (occurrence: None)
  Receive Date: 20050916
  Receipt Date: 20050907
  Transmission Date: 20060218
  Serious: Yes (Hospitalization)
  Sender: FDA-Public Use
  Company Number: 2005125433

PATIENT
  Age: 53 Year
  Sex: Female
  Weight: 81.6475 kg

DRUGS (5)
  1. ZYRTEC [Suspect]
     Indication: MULTIPLE ALLERGIES
     Dosage: 10 MG (10 MG, 1 IN 1 AS NECESSARY), ORAL
     Route: 048
  2. METOPROLOL TARTRATE [Concomitant]
  3. ENALAPRIL MALEATE [Concomitant]
  4. PROVENTIL SOLUTION (SALBUTAMOL SULFATE) [Concomitant]
  5. PROVENTIL [Concomitant]

REACTIONS (2)
  - ASTHMA [None]
  - CHRONIC OBSTRUCTIVE PULMONARY DISEASE [None]
